FAERS Safety Report 7875745-1 (Version None)
Quarter: 2011Q4

REPORT INFORMATION
  Report Type: 
  Country: None (occurrence: None)
  Receive Date: 20111031
  Receipt Date: 20111026
  Transmission Date: 20120403
  Serious: Yes (Hospitalization)
  Sender: FDA-Public Use
  Company Number: US-B.I. PHARMACEUTICALS,INC./RIDGEFIELD-2011-BP-21398BP

PATIENT
  Age: 81 Year
  Sex: Female
  Weight: 76.66 kg

DRUGS (6)
  1. PRADAXA [Suspect]
     Dosage: 300 MG
     Route: 048
     Dates: end: 20110721
  2. CARDIZEM [Concomitant]
     Dosage: 180 MG
  3. SYNTHROID [Concomitant]
     Dosage: 125 MCG
  4. TOPROL-XL [Concomitant]
     Dosage: 200 MG
  5. ACTONEL [Concomitant]
     Dosage: 35 MG
     Dates: start: 20100509
  6. ATENOLOL [Concomitant]
     Dosage: 32 MG

REACTIONS (2)
  - ANAEMIA [None]
  - LARGE INTESTINAL HAEMORRHAGE [None]
